FAERS Safety Report 20746645 (Version 1)
Quarter: 2022Q2

REPORT INFORMATION
  Report Type: Other
  Country: US (occurrence: None)
  Receive Date: 20220425
  Receipt Date: 20220425
  Transmission Date: 20220720
  Serious: Yes (Death)
  Sender: FDA-Public Use
  Company Number: US-ROCHE-3073411

PATIENT
  Age: 74 Year
  Sex: Female

DRUGS (1)
  1. OCREVUS [Suspect]
     Active Substance: OCRELIZUMAB
     Indication: Relapsing multiple sclerosis
     Dosage: THAN 600 MG EVERY 6 MONTHS
     Route: 065
     Dates: start: 20190612

REACTIONS (4)
  - Off label use [Unknown]
  - Asthenia [Fatal]
  - Impaired healing [Fatal]
  - Subdural haematoma [Fatal]

NARRATIVE: CASE EVENT DATE: 20220216
